FAERS Safety Report 7713486-1 (Version None)
Quarter: 2011Q3

REPORT INFORMATION
  Report Type: 
  Country: None (occurrence: None)
  Receive Date: 20110826
  Receipt Date: 20110812
  Transmission Date: 20111222
  Serious: No
  Sender: FDA-Public Use
  Company Number: DE-UCBSA-038157

PATIENT
  Age: 7 Year
  Sex: Female
  Weight: 22 kg

DRUGS (3)
  1. VIMPAT [Suspect]
     Dosage: 4.5 - 5 ML DAILY DOSE, 15MG/ML
     Route: 048
     Dates: start: 20100101
  2. VALPROIC ACID [Concomitant]
  3. LAMICTAL [Concomitant]

REACTIONS (1)
  - NO ADVERSE EVENT [None]
